FAERS Safety Report 6772688-1 (Version None)
Quarter: 2010Q2

REPORT INFORMATION
  Report Type: 
  Country: None (occurrence: None)
  Receive Date: 20100616
  Receipt Date: 20090428
  Transmission Date: 20101027
  Serious: No
  Sender: FDA-Public Use
  Company Number: US-ASTRAZENECA-2009UW10591

PATIENT
  Sex: Female

DRUGS (7)
  1. PULMICORT RESPULES [Suspect]
     Dosage: 0.5 MGS/2ML TWO TIMES A DAY
     Route: 055
     Dates: start: 20090201
  2. HEART MEDICATIONS [Concomitant]
  3. WARFARIN SODIUM [Concomitant]
  4. ALBUTEROL [Concomitant]
  5. FLECANIDINE [Concomitant]
  6. CARVEDILOL [Concomitant]
  7. PREDNISONE [Concomitant]

REACTIONS (1)
  - DYSPNOEA [None]
